FAERS Safety Report 25504474 (Version 1)
Quarter: 2025Q3

REPORT INFORMATION
  Report Type: Spontaneous
  Country: JP (occurrence: JP)
  Receive Date: 20250702
  Receipt Date: 20250702
  Transmission Date: 20251021
  Serious: Yes (Other)
  Sender: PFIZER
  Company Number: JP-PFIZER INC-202500132007

PATIENT
  Age: 61 Year
  Sex: Male

DRUGS (1)
  1. LORBRENA [Suspect]
     Active Substance: LORLATINIB
     Route: 048

REACTIONS (1)
  - Cardiac tamponade [Unknown]
